FAERS Safety Report 17499709 (Version 5)
Quarter: 2021Q4

REPORT INFORMATION
  Report Type: Spontaneous
  Country: JP (occurrence: JP)
  Receive Date: 20200304
  Receipt Date: 20211004
  Transmission Date: 20220303
  Serious: Yes (Disabling)
  Sender: FDA-Public Use
  Company Number: JP-SANOFI-2020SA050504

PATIENT
  Age: 4 Year
  Sex: Male
  Weight: 8.8 kg

DRUGS (7)
  1. VIGABATRIN [Suspect]
     Active Substance: VIGABATRIN
     Indication: Infantile spasms
     Dosage: DAILY DOSAGE: 450 MG, BID
     Route: 048
     Dates: start: 20190125, end: 20190522
  2. VIGABATRIN [Suspect]
     Active Substance: VIGABATRIN
     Dosage: 280 MG/DAY, BID
     Route: 048
     Dates: start: 20190523, end: 20210127
  3. VIGABATRIN [Suspect]
     Active Substance: VIGABATRIN
     Dosage: 140 MG/DAY, BID
     Route: 048
     Dates: start: 20210128, end: 20210224
  4. VALPROATE SODIUM [Concomitant]
     Active Substance: VALPROATE SODIUM
     Indication: Infantile spasms
     Dosage: DAILY DOSAGE: 400 MG
     Route: 048
  5. LAMOTRIGINE [Concomitant]
     Active Substance: LAMOTRIGINE
     Indication: Infantile spasms
     Dosage: DAILY DOSAGE: 18 MG
     Route: 048
  6. TIZANIDINE [Concomitant]
     Active Substance: TIZANIDINE
     Indication: Product used for unknown indication
     Dosage: DAILY DOSAGE: 1.7 MG
     Route: 048
  7. DANTRIUM [Concomitant]
     Active Substance: DANTROLENE SODIUM
     Indication: Product used for unknown indication
     Dosage: DAILY DOSAGE: 8 MG
     Route: 048

REACTIONS (2)
  - Increased bronchial secretion [Recovering/Resolving]
  - Dyspnoea [Recovering/Resolving]

NARRATIVE: CASE EVENT DATE: 20190130
